FAERS Safety Report 8328839-0 (Version None)
Quarter: 2012Q2

REPORT INFORMATION
  Report Type: 
  Country: None (occurrence: None)
  Receive Date: 20120502
  Receipt Date: 20120426
  Transmission Date: 20120825
  Serious: Yes (Death)
  Sender: FDA-Public Use
  Company Number: NO-PFIZER INC-2012098240

PATIENT
  Age: 79 Year
  Sex: Female

DRUGS (14)
  1. AZOPT [Concomitant]
  2. DILTIAZEM [Concomitant]
  3. DIGITOXIN TAB [Concomitant]
  4. NEXIUM [Concomitant]
  5. AROMASIN [Suspect]
     Indication: BREAST CANCER
     Route: 048
     Dates: start: 20111116, end: 20120319
  6. VITAMIN B-12 [Concomitant]
  7. BUMETANIDE [Concomitant]
  8. ATROVENT [Concomitant]
  9. WARFARIN SODIUM [Concomitant]
  10. XALATAN [Concomitant]
  11. LANOXIN [Concomitant]
  12. VENTOLIN [Concomitant]
  13. FUROSEMIDE [Concomitant]
  14. INSULIN HUMAN [Concomitant]

REACTIONS (1)
  - HEPATITIS TOXIC [None]
